FAERS Safety Report 23392519 (Version 3)
Quarter: 2024Q1

REPORT INFORMATION
  Report Type: Spontaneous
  Country: AR (occurrence: AR)
  Receive Date: 20240111
  Receipt Date: 20240312
  Transmission Date: 20240410
  Serious: No
  Sender: FDA-Public Use
  Company Number: AR-PFIZER INC-PV202300205417

PATIENT
  Age: 4 Year
  Sex: Male

DRUGS (1)
  1. GENOTROPIN [Suspect]
     Active Substance: SOMATROPIN
     Indication: Growth hormone deficiency
     Dosage: 0.5 MG,  7 TIMES PER DAY
     Dates: start: 20230920

REACTIONS (2)
  - Poor quality device used [Not Recovered/Not Resolved]
  - Device breakage [Not Recovered/Not Resolved]
